FAERS Safety Report 10554997 (Version 3)
Quarter: 2014Q4

REPORT INFORMATION
  Report Type: Spontaneous
  Country: DE (occurrence: DE)
  Receive Date: 20141030
  Receipt Date: 20141107
  Transmission Date: 20150529
  Serious: Yes (Life-Threatening)
  Sender: FDA-Public Use
  Company Number: DE-GLAXOSMITHKLINE-DE2014GSK002545

PATIENT
  Age: 44 Year
  Sex: Female
  Weight: 70 kg

DRUGS (9)
  1. ARCOXIA [Concomitant]
     Active Substance: ETORICOXIB
     Dosage: 90 MG, PRN
  2. ECURAL [Concomitant]
     Active Substance: MOMETASONE
     Dosage: UNK
  3. BENLYSTA [Suspect]
     Active Substance: BELIMUMAB
     Indication: SYSTEMIC LUPUS ERYTHEMATOSUS
     Dosage: 640 MG, SINGLE, 250ML/HOUR
     Route: 042
     Dates: start: 20140923, end: 20140923
  4. MTX [Concomitant]
     Active Substance: METHOTREXATE SODIUM
     Indication: SYSTEMIC LUPUS ERYTHEMATOSUS
     Dosage: 7.5MG, WE
     Route: 058
     Dates: start: 201207
  5. VIGANTOLETTEN [Concomitant]
     Active Substance: CHOLECALCIFEROL
     Dosage: 1000 IE, BID
  6. FOLIC ACID. [Concomitant]
     Active Substance: FOLIC ACID
     Dosage: 5 MG, Z, 24 HOURS AFTER MTX ADMINISTRATION
  7. PANTOZOL [Concomitant]
     Active Substance: PANTOPRAZOLE SODIUM
     Dosage: 20 MG, QD
  8. MTX [Concomitant]
     Active Substance: METHOTREXATE SODIUM
     Dosage: UNK
  9. METHYLPREDNISOLONE. [Concomitant]
     Active Substance: METHYLPREDNISOLONE
     Indication: SYSTEMIC LUPUS ERYTHEMATOSUS
     Dosage: 2 MG, QD
     Dates: start: 2009

REACTIONS (16)
  - Face oedema [Recovered/Resolved]
  - Ocular hyperaemia [Recovered/Resolved]
  - Rash papular [Recovered/Resolved]
  - Feeling hot [Recovered/Resolved]
  - Erythema [Recovered/Resolved]
  - Burning sensation [Recovered/Resolved]
  - Drug eruption [Recovered/Resolved]
  - Hypertension [Recovered/Resolved]
  - Paraesthesia [Recovered/Resolved]
  - Urticaria [Recovered/Resolved]
  - Pruritus [Recovered/Resolved]
  - Urticaria [Recovered/Resolved]
  - Eye swelling [Recovered/Resolved]
  - Raynaud^s phenomenon [Recovered/Resolved]
  - Hypersensitivity [Recovered/Resolved]
  - Dermatitis allergic [Recovered/Resolved]

NARRATIVE: CASE EVENT DATE: 20140923
